FAERS Safety Report 6238029-3 (Version None)
Quarter: 2009Q2

REPORT INFORMATION
  Report Type: 
  Country: None (occurrence: None)
  Receive Date: 20090617
  Receipt Date: 20090602
  Transmission Date: 20091009
  Serious: Yes (Disabling)
  Sender: FDA-Public Use
  Company Number: IDA-00217

PATIENT
  Age: 61 Year
  Sex: Male

DRUGS (1)
  1. PROPRANOLOL [Suspect]
     Indication: HYPERTENSION
     Dosage: 160 MG DAILY ORAL FORMUATION: TABLET
     Route: 048
     Dates: start: 19890101

REACTIONS (4)
  - OSTEONECROSIS [None]
  - RAYNAUD'S PHENOMENON [None]
  - SKIN NECROSIS [None]
  - TOE AMPUTATION [None]
